FAERS Safety Report 20653008 (Version 1)
Quarter: 2022Q1

REPORT INFORMATION
  Report Type: Spontaneous
  Country: JP (occurrence: JP)
  Receive Date: 20220330
  Receipt Date: 20220330
  Transmission Date: 20220423
  Serious: Yes (Other)
  Sender: FDA-Public Use
  Company Number: JP-002147023-NVSJ2022JP004774

PATIENT
  Sex: Male

DRUGS (2)
  1. DICLOFENAC [Suspect]
     Active Substance: DICLOFENAC
     Indication: Pyrexia
     Dosage: UNK
     Route: 065
  2. DICLOFENAC [Suspect]
     Active Substance: DICLOFENAC
     Indication: Meningitis

REACTIONS (5)
  - Tubulointerstitial nephritis [Unknown]
  - Uveitis [Unknown]
  - Blood creatinine increased [Unknown]
  - Tubulointerstitial nephritis and uveitis syndrome [Unknown]
  - Product use in unapproved indication [Unknown]
